FAERS Safety Report 4416902-6 (Version None)
Quarter: 2004Q3

REPORT INFORMATION
  Report Type: 
  Country: None (occurrence: None)
  Receive Date: 20040806
  Receipt Date: 20040726
  Transmission Date: 20050211
  Serious: Yes (Other)
  Sender: FDA-Public Use
  Company Number: US-ROCHE-375908

PATIENT
  Sex: Female

DRUGS (4)
  1. ACCUTANE [Suspect]
     Indication: DRUG USE FOR UNKNOWN INDICATION
     Route: 048
     Dates: start: 19940615, end: 19940615
  2. LO/OVRAL [Concomitant]
     Indication: CONTRACEPTION
     Route: 048
  3. CONTRACEPTIVE [Concomitant]
     Indication: CONTRACEPTION
     Dosage: REPORTED AS MERCET.
     Route: 048
     Dates: end: 20030515
  4. SYNTHROID [Concomitant]

REACTIONS (3)
  - INFERTILITY [None]
  - MENSTRUAL DISORDER [None]
  - METRORRHAGIA [None]
